FAERS Safety Report 14474583 (Version 3)
Quarter: 2019Q3

REPORT INFORMATION
  Report Type: Spontaneous
  Country: FR (occurrence: FR)
  Receive Date: 20180201
  Receipt Date: 20190916
  Transmission Date: 20191004
  Serious: Yes (Hospitalization, Other)
  Sender: FDA-Public Use
  Company Number: FR-MYLANLABS-2018M1005897

PATIENT
  Age: 48 Year
  Sex: Male

DRUGS (5)
  1. DALFAMPRIDINE. [Interacting]
     Active Substance: DALFAMPRIDINE
     Indication: SECONDARY PROGRESSIVE MULTIPLE SCLEROSIS
     Dosage: 30 MILLIGRAM, QD (10 MG, TID)
     Route: 065
  2. BACLOFEN. [Suspect]
     Active Substance: BACLOFEN
     Indication: SECONDARY PROGRESSIVE MULTIPLE SCLEROSIS
     Dosage: 60 MILLIGRAM, QD (20 MG, TID)
     Route: 065
  3. DALFAMPRIDINE. [Interacting]
     Active Substance: DALFAMPRIDINE
     Indication: MULTIPLE SCLEROSIS
  4. CYCLOPHOSPHAMIDE. [Concomitant]
     Active Substance: CYCLOPHOSPHAMIDE
     Indication: SECONDARY PROGRESSIVE MULTIPLE SCLEROSIS
     Dosage: 1 UNK, MONTHLY (QMO)
     Route: 042
     Dates: start: 2012, end: 2014
  5. DAL [Suspect]
     Active Substance: DESOGESTREL\ETHINYL ESTRADIOL
     Indication: MULTIPLE SCLEROSIS
     Dosage: 30 MILLIGRAM, QD (10 MG, TID)
     Route: 065

REACTIONS (10)
  - Drug interaction [Unknown]
  - Generalised tonic-clonic seizure [Recovered/Resolved]
  - Altered state of consciousness [Recovered/Resolved]
  - Bladder disorder [Unknown]
  - Myoclonus [Unknown]
  - Paraparesis [Unknown]
  - Status epilepticus [Recovered/Resolved]
  - Central nervous system lesion [Unknown]
  - Cerebellar syndrome [Unknown]
  - Cerebral atrophy [Unknown]
